FAERS Safety Report 7962391-4 (Version None)
Quarter: 2011Q4

REPORT INFORMATION
  Report Type: 
  Country: None (occurrence: None)
  Receive Date: 20111206
  Receipt Date: 20111122
  Transmission Date: 20120403
  Serious: Yes (Hospitalization, Other)
  Sender: FDA-Public Use
  Company Number: DSU-2011-08781

PATIENT
  Age: 57 Year
  Sex: Male
  Weight: 90.7194 kg

DRUGS (2)
  1. BENICAR HCT [Suspect]
     Indication: HYPERTENSION
     Dosage: 40/12.5MG,PER ORAL
     Route: 048
     Dates: start: 20090101, end: 20110101
  2. PRAVASTATIN [Concomitant]

REACTIONS (4)
  - RENAL FAILURE [None]
  - WEIGHT DECREASED [None]
  - COELIAC DISEASE [None]
  - DEHYDRATION [None]
